FAERS Safety Report 9088457 (Version 1)
Quarter: 2013Q1

REPORT INFORMATION
  Report Type: Report from Study
  Country: US (occurrence: US)
  Receive Date: 20130130
  Receipt Date: 20130130
  Transmission Date: 20140127
  Serious: No
  Sender: FDA-Public Use
  Company Number: US-ABBOTT-12P-163-0970507-00

PATIENT
  Sex: Female
  Weight: 90.8 kg

DRUGS (9)
  1. HUMIRA [Suspect]
     Indication: PSORIATIC ARTHROPATHY
     Route: 058
  2. BALCOFEN [Concomitant]
     Indication: MUSCLE SPASMS
     Dosage: 1 TAB EVERY 8 HOURS
  3. TRAMADOL [Concomitant]
     Indication: PAIN
     Dosage: 1 TAB PM
  4. LEVOTHYROXINE [Concomitant]
     Indication: NEOPLASM
     Dosage: 0.175 MG 1 TAB AT NIGHT
  5. BENICAR [Concomitant]
     Indication: HYPERTENSION
     Dosage: 20 MG 1 TAB EVERY NIGHT
  6. NABUMETONE [Concomitant]
     Indication: PAIN
     Dosage: 500 MG 1 TAB TWICE DAILY
  7. GABAPENTIN [Concomitant]
     Indication: PAIN
     Dosage: 300 MG 1 TAB DAILY
  8. HYDROCODONE [Concomitant]
     Indication: PAIN
     Dosage: 5/325 MG 1 TAB IN AM AND 1 TAB PM-ROTATES NAMBUETONE, GABAPENTIN AND HYDROCODONE
  9. AMBIEN CR [Concomitant]
     Indication: PRODUCT USED FOR UNKNOWN INDICATION
     Dosage: AT BEDTIME

REACTIONS (5)
  - Paraesthesia [Not Recovered/Not Resolved]
  - Pruritus [Not Recovered/Not Resolved]
  - Burning sensation [Not Recovered/Not Resolved]
  - Sciatica [Not Recovered/Not Resolved]
  - Musculoskeletal pain [Not Recovered/Not Resolved]
